FAERS Safety Report 10249007 (Version 1)
Quarter: 2014Q2

REPORT INFORMATION
  Report Type: Spontaneous
  Country: US (occurrence: None)
  Receive Date: 20140522
  Receipt Date: 20140522
  Transmission Date: 20141212
  Serious: No
  Sender: FDA-Public Use
  Company Number: 1000065704

PATIENT
  Age: 51 Year
  Sex: Female

DRUGS (10)
  1. TUDORZA PRESSAIR [Suspect]
     Indication: BRONCHITIS CHRONIC
     Route: 055
     Dates: start: 20140310
  2. TUDORZA PRESSAIR [Suspect]
     Indication: ASTHMA
     Route: 055
     Dates: start: 20140310
  3. ABILIFY (ARIPIPRAZOLE) [Concomitant]
  4. NEURONTIN (GABAPENTIN) [Concomitant]
  5. NEXIUM (ESOMEPRAZOLE) [Concomitant]
  6. TRILEPTAL (OXCARBAZEPINE) [Concomitant]
  7. TRAMADOL [Concomitant]
  8. KLONOPIN (CLONAZEPAM) [Concomitant]
  9. VIT D3 (COLECALCIFEROL) [Concomitant]
  10. CALCIUM [Concomitant]

REACTIONS (2)
  - Pharyngeal oedema [None]
  - Off label use [None]
